FAERS Safety Report 12605654 (Version 1)
Quarter: 2016Q3

REPORT INFORMATION
  Report Type: Spontaneous
  Country: US (occurrence: US)
  Receive Date: 20160729
  Receipt Date: 20160729
  Transmission Date: 20161109
  Serious: Yes (Other)
  Sender: FDA-Public Use
  Company Number: US-AUROBINDO-AUR-APL-2016-08680

PATIENT
  Age: 86 Year
  Sex: Male

DRUGS (2)
  1. CITALOPRAM [Suspect]
     Active Substance: CITALOPRAM HYDROBROMIDE
     Indication: DEPRESSED MOOD
     Route: 065
  2. DULOXETINE 20 MG TEVA [Suspect]
     Active Substance: DULOXETINE
     Indication: DEPRESSED MOOD
     Dosage: 20 MG, ONCE A DAY
     Route: 065

REACTIONS (6)
  - Lethargy [Recovered/Resolved]
  - Asthenia [Recovered/Resolved]
  - Abnormal dreams [Recovered/Resolved]
  - Somnolence [Recovered/Resolved]
  - Inappropriate antidiuretic hormone secretion [Recovered/Resolved]
  - Blood sodium decreased [Recovered/Resolved]
